FAERS Safety Report 23576143 (Version 1)
Quarter: 2024Q1

REPORT INFORMATION
  Report Type: Spontaneous
  Country: US (occurrence: None)
  Receive Date: 20240228
  Receipt Date: 20240228
  Transmission Date: 20240410
  Serious: Yes (Hospitalization)
  Sender: FDA-Public Use
  Company Number: None

PATIENT
  Age: 53 Year
  Sex: Female

DRUGS (5)
  1. NUCALA [Suspect]
     Active Substance: MEPOLIZUMAB
     Indication: Asthma
     Dosage: FREQ: INJECT 1 PEN UNDER THE SKIN (SUBCUTANEOUS INJECTION) ONCE A MONTH
     Route: 058
     Dates: start: 20210212
  2. MAGNESIUM [Concomitant]
     Active Substance: MAGNESIUM
  3. VITAMINS [Concomitant]
     Active Substance: VITAMINS
  4. TYLENOL [Concomitant]
     Active Substance: ACETAMINOPHEN
  5. VITMAMIN B1 [Concomitant]

REACTIONS (2)
  - Dyspnoea [None]
  - Quality of life decreased [None]

NARRATIVE: CASE EVENT DATE: 20240226
